FAERS Safety Report 4899828-3 (Version None)
Quarter: 2006Q1

REPORT INFORMATION
  Report Type: 
  Country: None (occurrence: None)
  Receive Date: 20060113
  Receipt Date: 20050921
  Transmission Date: 20060701
  Serious: No
  Sender: FDA-Public Use
  Company Number: 2005SP002858

PATIENT
  Age: 40 Year
  Sex: Female
  Weight: 44.4525 kg

DRUGS (2)
  1. LUNESTA [Suspect]
     Indication: INSOMNIA
     Dosage: 2 MG; HS; ORAL
     Route: 048
     Dates: start: 20050101, end: 20050819
  2. AMBIEN [Concomitant]

REACTIONS (1)
  - DYSGEUSIA [None]
